FAERS Safety Report 22026840 (Version 1)
Quarter: 2023Q1

REPORT INFORMATION
  Report Type: Spontaneous
  Country: FR (occurrence: FR)
  Receive Date: 20230223
  Receipt Date: 20230223
  Transmission Date: 20230418
  Serious: Yes (Other)
  Sender: FDA-Public Use
  Company Number: FR-JNJFOC-20230209415

PATIENT
  Age: 79 Year
  Sex: Female
  Weight: 49 kg

DRUGS (15)
  1. AMOXICILLIN [Suspect]
     Active Substance: AMOXICILLIN
     Indication: Pneumonia
     Dosage: 500 MILLIGRAM (0.33 DAY)
     Route: 065
     Dates: start: 20230127
  2. SELEXIPAG [Suspect]
     Active Substance: SELEXIPAG
     Indication: Pulmonary arterial hypertension
     Dosage: 200 MICROGRAM(0.5 DAY)
     Route: 048
     Dates: start: 20220803
  3. SELEXIPAG [Suspect]
     Active Substance: SELEXIPAG
     Indication: Connective tissue disorder
     Dosage: 400 MICROGRAM(0.5 DAY)
     Route: 048
     Dates: start: 20220810
  4. SELEXIPAG [Suspect]
     Active Substance: SELEXIPAG
     Dosage: 600 MICROGRAM(0.5 DAY)
     Route: 048
     Dates: start: 20220817
  5. SELEXIPAG [Suspect]
     Active Substance: SELEXIPAG
     Dosage: 800 MICROGRAM(0.5 DAY)
     Route: 048
     Dates: start: 20220824
  6. SELEXIPAG [Suspect]
     Active Substance: SELEXIPAG
     Dosage: 1000 MICROGRAM(0.5 DAY)
     Route: 048
     Dates: start: 20220909
  7. SELEXIPAG [Suspect]
     Active Substance: SELEXIPAG
     Dosage: 1200 MICROGRAM(0.5 DAY)
     Route: 048
     Dates: start: 20220916
  8. SELEXIPAG [Suspect]
     Active Substance: SELEXIPAG
     Dosage: 1400 MICROGRAM(0.5 DAY)
     Route: 048
     Dates: start: 20220923
  9. SELEXIPAG [Suspect]
     Active Substance: SELEXIPAG
     Dosage: 800 MICROGRAM(0.5 DAY)
     Route: 048
     Dates: start: 20221005
  10. SELEXIPAG [Suspect]
     Active Substance: SELEXIPAG
     Dosage: 1000 MICROGRAM(0.5 DAY)
     Route: 048
     Dates: start: 20221008
  11. SELEXIPAG [Suspect]
     Active Substance: SELEXIPAG
     Dosage: 1200 MICROGRAM(0.5 DAY)
     Route: 048
     Dates: start: 20221012
  12. SELEXIPAG [Suspect]
     Active Substance: SELEXIPAG
     Dosage: 1400 MICROGRAM(0.5 DAY)
     Route: 048
     Dates: start: 20221014
  13. SELEXIPAG [Suspect]
     Active Substance: SELEXIPAG
     Dosage: 1600 MICROGRAM(0.5 DAY)
     Route: 048
     Dates: start: 20221021
  14. TADALAFIL [Concomitant]
     Active Substance: TADALAFIL
     Indication: Pulmonary arterial hypertension
     Dosage: UNK
     Route: 065
  15. AMBRISENTAN [Concomitant]
     Active Substance: AMBRISENTAN
     Indication: Pulmonary arterial hypertension
     Dosage: UNK
     Route: 065

REACTIONS (3)
  - Pneumonia [Recovering/Resolving]
  - Psychiatric symptom [Unknown]
  - Diarrhoea [Not Recovered/Not Resolved]

NARRATIVE: CASE EVENT DATE: 20230101
